FAERS Safety Report 8097262-9 (Version None)
Quarter: 2012Q1

REPORT INFORMATION
  Report Type: 
  Country: None (occurrence: None)
  Receive Date: 20120126
  Receipt Date: 20120120
  Transmission Date: 20120608
  Serious: Yes (Other)
  Sender: FDA-Public Use
  Company Number: A0962350A

PATIENT

DRUGS (1)
  1. ASPIRIN + CAFFEINE + PARACETAMOL (FORMULATION UNKNOWN) (ACETAMINOPHEN [Suspect]
     Indication: PRODUCT USED FOR UNKNOWN INDICATION

REACTIONS (1)
  - PHARYNGEAL HAEMORRHAGE [None]
